FAERS Safety Report 9811866 (Version 2)
Quarter: 2014Q4

REPORT INFORMATION
  Report Type: Spontaneous
  Country: US (occurrence: US)
  Receive Date: 20140110
  Receipt Date: 20141229
  Transmission Date: 20150529
  Serious: Yes (Other)
  Sender: FDA-Public Use
  Company Number: US-SANOFI-AVENTIS-2013SA068479

PATIENT
  Age: 73 Year
  Sex: Male

DRUGS (24)
  1. SIMVASTATIN. [Concomitant]
     Active Substance: SIMVASTATIN
     Indication: BLOOD CHOLESTEROL
  2. COLCHICINE. [Concomitant]
     Active Substance: COLCHICINE
  3. LOSARTAN [Concomitant]
     Active Substance: LOSARTAN
     Indication: CARDIAC DISORDER
  4. DIPHENHYDRAMINE [Concomitant]
     Active Substance: DIPHENHYDRAMINE
     Dosage: STRENGTH: 25 MG
  5. VIAGRA [Concomitant]
     Active Substance: SILDENAFIL CITRATE
  6. CIPRO [Concomitant]
     Active Substance: CIPROFLOXACIN HYDROCHLORIDE
  7. FISH OIL [Concomitant]
     Active Substance: FISH OIL
  8. PLAVIX [Suspect]
     Active Substance: CLOPIDOGREL BISULFATE
     Indication: ARTERIOSCLEROSIS
     Route: 065
     Dates: start: 20050801
  9. ASPIRIN. [Concomitant]
     Active Substance: ASPIRIN
  10. GEMFIBROZIL. [Concomitant]
     Active Substance: GEMFIBROZIL
  11. PLAVIX [Suspect]
     Active Substance: CLOPIDOGREL BISULFATE
     Indication: ARTERIOSCLEROSIS
     Route: 065
     Dates: start: 20090921, end: 20100922
  12. PLAVIX [Suspect]
     Active Substance: CLOPIDOGREL BISULFATE
     Indication: ARTERIOSCLEROSIS
     Route: 065
     Dates: start: 20101108, end: 20111109
  13. ISOSORBIDE MONONITRATE. [Concomitant]
     Active Substance: ISOSORBIDE MONONITRATE
     Indication: CARDIAC DISORDER
  14. NITROQUICK [Concomitant]
     Active Substance: NITROGLYCERIN
  15. PLAVIX [Suspect]
     Active Substance: CLOPIDOGREL BISULFATE
     Indication: ARTERIOSCLEROSIS
     Route: 065
     Dates: start: 20050824, end: 20060825
  16. RANITIDINE [Concomitant]
     Active Substance: RANITIDINE\RANITIDINE HYDROCHLORIDE
     Dosage: STRENGTH: 150 MG
  17. ZOSYN [Concomitant]
     Active Substance: PIPERACILLIN SODIUM\TAZOBACTAM SODIUM
  18. ALLOPURINOL. [Concomitant]
     Active Substance: ALLOPURINOL
     Dosage: STRENGTH: 100 MG
     Route: 048
  19. PLAVIX [Suspect]
     Active Substance: CLOPIDOGREL BISULFATE
     Indication: ARTERIOSCLEROSIS
     Route: 065
     Dates: start: 20111121, end: 20121121
  20. BIOTIN [Concomitant]
     Active Substance: BIOTIN
  21. EPOGEN [Concomitant]
     Active Substance: ERYTHROPOIETIN
  22. MECLOZINE [Concomitant]
     Indication: DIZZINESS
  23. CALCITROL [Concomitant]
     Active Substance: CALCITRIOL
     Dosage: STRENGTH: 0.25 MCG
     Route: 048
  24. NITROSTAT [Concomitant]
     Active Substance: NITROGLYCERIN
     Dosage: THE TONGUE Q5MIN AS NEEDED

REACTIONS (1)
  - Gastrointestinal haemorrhage [Unknown]

NARRATIVE: CASE EVENT DATE: 201110
